FAERS Safety Report 15059485 (Version 3)
Quarter: 2018Q4

REPORT INFORMATION
  Report Type: Report from Study
  Country: US (occurrence: US)
  Receive Date: 20180625
  Receipt Date: 20181126
  Transmission Date: 20190204
  Serious: Yes (Hospitalization, Other)
  Sender: FDA-Public Use
  Company Number: US-SA-2018SA157968

PATIENT
  Age: 74 Year
  Sex: Male
  Weight: 71 kg

DRUGS (14)
  1. SODIUM CHLORIDE. [Concomitant]
     Active Substance: SODIUM CHLORIDE
     Dosage: 1000 ML
     Route: 048
  2. CABAZITAXEL [Suspect]
     Active Substance: CABAZITAXEL
     Dosage: 25 UNK
     Route: 042
     Dates: start: 20181002, end: 20181002
  3. CABAZITAXEL [Suspect]
     Active Substance: CABAZITAXEL
     Indication: PROSTATE CANCER
     Dosage: 25 UNK
     Route: 042
     Dates: start: 20180214, end: 20180214
  4. CABAZITAXEL [Suspect]
     Active Substance: CABAZITAXEL
     Dosage: 25 MG
     Route: 042
     Dates: start: 20170823, end: 20170823
  5. ENZALUTAMIDE [Suspect]
     Active Substance: ENZALUTAMIDE
     Dosage: 160 MG, QD
     Route: 048
     Dates: start: 20181024, end: 20181024
  6. IOPAMIDOL [Concomitant]
     Active Substance: IOPAMIDOL
     Dosage: 80 ML
     Route: 042
  7. MAALOX ANTACID WITH ANTI-GAS [Concomitant]
     Active Substance: ALUMINUM HYDROXIDE\DIMETHICONE\MAGNESIUM HYDROXIDE
     Dosage: 30 ML
     Route: 048
     Dates: start: 20181025
  8. PREDNISONE. [Suspect]
     Active Substance: PREDNISONE
     Dosage: 5 MG
     Route: 048
     Dates: start: 20170823, end: 20170823
  9. ENZALUTAMIDE [Suspect]
     Active Substance: ENZALUTAMIDE
     Dosage: 160 MG, QD
     Route: 042
     Dates: start: 20170823, end: 20170823
  10. ASPIRIN [ACETYLSALICYLIC ACID] [Concomitant]
     Active Substance: ASPIRIN
     Dosage: 325 MG
     Route: 048
     Dates: start: 20181025
  11. CABAZITAXEL [Suspect]
     Active Substance: CABAZITAXEL
     Dosage: 25 UNK
     Route: 042
     Dates: start: 20181022, end: 20181022
  12. PREDNISONE. [Suspect]
     Active Substance: PREDNISONE
     Dosage: 5 UNK
     Route: 048
     Dates: start: 20180314, end: 20180314
  13. ENZALUTAMIDE [Suspect]
     Active Substance: ENZALUTAMIDE
     Indication: PROSTATE CANCER
     Dosage: 160 MG, QD
     Route: 048
     Dates: start: 20180603, end: 20180603
  14. ENZALUTAMIDE [Suspect]
     Active Substance: ENZALUTAMIDE
     Dosage: 160 MG, QD
     Route: 048
     Dates: start: 20181002, end: 20181002

REACTIONS (6)
  - Osteoarthritis [Unknown]
  - Abdominal pain [Recovered/Resolved]
  - Muscle strain [Recovered/Resolved]
  - Weight decreased [Recovered/Resolved]
  - Failure to thrive [Recovered/Resolved]
  - Pain [Unknown]

NARRATIVE: CASE EVENT DATE: 20181003
